FAERS Safety Report 7796022-3 (Version None)
Quarter: 2011Q4

REPORT INFORMATION
  Report Type: 
  Country: None (occurrence: None)
  Receive Date: 20111004
  Receipt Date: 20110928
  Transmission Date: 20120403
  Serious: Yes (Hospitalization)
  Sender: FDA-Public Use
  Company Number: CHPA2011US13323

PATIENT
  Age: 66 Year
  Sex: Female

DRUGS (1)
  1. GAS-X CHEWABLE TABLETS UNKNOWN [Suspect]
     Indication: FLATULENCE
     Dosage: 1 DF, QD
     Route: 048
     Dates: start: 20110918, end: 20110923

REACTIONS (4)
  - CONVULSION [None]
  - CARDIAC FAILURE [None]
  - EXPIRED DRUG ADMINISTERED [None]
  - OFF LABEL USE [None]
